FAERS Safety Report 21643143 (Version 2)
Quarter: 2023Q1

REPORT INFORMATION
  Report Type: Report from Study
  Country: US (occurrence: US)
  Receive Date: 20221125
  Receipt Date: 20230130
  Transmission Date: 20230417
  Serious: No
  Sender: FDA-Public Use
  Company Number: US-BIOVITRUM-2022US13525

PATIENT
  Sex: Female

DRUGS (16)
  1. KINERET [Suspect]
     Active Substance: ANAKINRA
     Indication: Product used for unknown indication
  2. FISH OIL (OTC) [Concomitant]
  3. GABAPENTIN [Concomitant]
     Active Substance: GABAPENTIN
  4. METOPROLOL TARTRATE [Concomitant]
     Active Substance: METOPROLOL TARTRATE
  5. FLECAINIDE ACETATE [Concomitant]
     Active Substance: FLECAINIDE ACETATE
  6. PANTOPRAZOLE SODIUM [Concomitant]
     Active Substance: PANTOPRAZOLE SODIUM
  7. VALSARTAN [Concomitant]
     Active Substance: VALSARTAN
  8. COLCHICINE [Concomitant]
     Active Substance: COLCHICINE
  9. NIFEDIPINE [Concomitant]
     Active Substance: NIFEDIPINE
  10. LUCENTIS [Concomitant]
     Active Substance: RANIBIZUMAB
  11. MAGNESIUM (OTC) [Concomitant]
  12. BIOTIN [Concomitant]
     Active Substance: BIOTIN
  13. DULOXETINE [Concomitant]
     Active Substance: DULOXETINE
  14. METFORMIN HYDROCHLORIDE [Concomitant]
     Active Substance: METFORMIN HYDROCHLORIDE
  15. LUTEIN (OTC) [Concomitant]
  16. LEVOTHYROXINE [Concomitant]
     Active Substance: LEVOTHYROXINE

REACTIONS (2)
  - Urinary tract infection [Unknown]
  - Product dose omission issue [Unknown]

NARRATIVE: CASE EVENT DATE: 20220101
